FAERS Safety Report 20362510 (Version 1)
Quarter: 2022Q1

REPORT INFORMATION
  Report Type: Spontaneous
  Country: IN (occurrence: IN)
  Receive Date: 20220121
  Receipt Date: 20220121
  Transmission Date: 20220423
  Serious: Yes (Hospitalization, Other)
  Sender: FDA-Public Use
  Company Number: IN-PFIZER INC-202200043853

PATIENT
  Age: 31 Year
  Sex: Male

DRUGS (1)
  1. PREGABALIN [Suspect]
     Active Substance: PREGABALIN
     Indication: Drug abuse
     Dosage: 2250 MG, DAILY (30 TABLETS OF 75 MG PREGABALIN DAILY)
     Route: 048

REACTIONS (10)
  - Drug abuse [Recovered/Resolved]
  - Dyskinesia [Recovered/Resolved]
  - Abnormal behaviour [Recovered/Resolved]
  - Blepharospasm [Recovered/Resolved]
  - Gait disturbance [Recovered/Resolved]
  - Hallucination [Recovered/Resolved]
  - Paranoia [Recovered/Resolved]
  - Paroxysmal choreoathetosis [Recovered/Resolved]
  - Euphoric mood [Recovered/Resolved]
  - Feeling of relaxation [Recovered/Resolved]
